FAERS Safety Report 8896216 (Version 2)
Quarter: 2012Q4

REPORT INFORMATION
  Report Type: 
  Country: GB (occurrence: GB)
  Receive Date: 20121108
  Receipt Date: 20121121
  Transmission Date: 20130627
  Serious: Yes (Other)
  Sender: FDA-Public Use
  Company Number: GB-ABBOTT-12P-167-1003840-00

PATIENT
  Age: 35 Year
  Sex: Male

DRUGS (5)
  1. EPILIM [Suspect]
     Indication: PRODUCT USED FOR UNKNOWN INDICATION
     Route: 048
     Dates: start: 2002
  2. CLOZAPINE [Suspect]
     Dosage: Daily
     Route: 048
     Dates: start: 19980309, end: 20050316
  3. CLOZAPINE [Suspect]
     Dosage: Twice a day
     Route: 048
     Dates: start: 20050317, end: 201208
  4. CLOZAPINE [Suspect]
     Dosage: Twice a day
     Route: 048
     Dates: start: 201208
  5. SULPIRIDE [Concomitant]
     Indication: PRODUCT USED FOR UNKNOWN INDICATION

REACTIONS (3)
  - Hidradenitis [Unknown]
  - Breast abscess [Unknown]
  - Groin abscess [Unknown]
